FAERS Safety Report 23277071 (Version 1)
Quarter: 2023Q4

REPORT INFORMATION
  Report Type: Spontaneous
  Country: US (occurrence: US)
  Receive Date: 20231208
  Receipt Date: 20231208
  Transmission Date: 20240110
  Serious: No
  Sender: FDA-Public Use
  Company Number: US-AMERICAN REGENT INC-2023001424

PATIENT
  Sex: Female

DRUGS (4)
  1. VENOFER [Suspect]
     Active Substance: IRON SUCROSE
     Indication: Iron deficiency anaemia
     Dosage: 200 MILLIGRAM, WEEKLY
     Route: 042
     Dates: start: 2023, end: 2023
  2. VENOFER [Suspect]
     Active Substance: IRON SUCROSE
     Indication: Chronic kidney disease
     Dosage: 200 MILLIGRAM, WEEKLY
     Route: 042
     Dates: start: 2023, end: 2023
  3. VENOFER [Suspect]
     Active Substance: IRON SUCROSE
     Dosage: 200 MILLIGRAM, WEEKLY
     Route: 042
     Dates: start: 2023, end: 2023
  4. VENOFER [Suspect]
     Active Substance: IRON SUCROSE
     Dosage: 200 MILLIGRAM, WEEKLY
     Route: 042
     Dates: start: 20230525, end: 20230525

REACTIONS (2)
  - Alopecia [Unknown]
  - Rash erythematous [Unknown]

NARRATIVE: CASE EVENT DATE: 20230101
